FAERS Safety Report 9583592 (Version 1)
Quarter: 2013Q4

REPORT INFORMATION
  Report Type: Spontaneous
  Country: US (occurrence: US)
  Receive Date: 20131002
  Receipt Date: 20131002
  Transmission Date: 20140711
  Serious: No
  Sender: FDA-Public Use
  Company Number: US-AMGEN-USASP2013048044

PATIENT
  Age: 42 Year
  Sex: Female

DRUGS (3)
  1. ENBREL [Suspect]
     Indication: PRODUCT USED FOR UNKNOWN INDICATION
     Dosage: 50 MG, QWK
     Route: 058
  2. METHOTREXATE [Concomitant]
     Dosage: 2.5 MG, UNK
  3. MOTRIN IB [Concomitant]
     Dosage: 200 MG, UNK

REACTIONS (4)
  - Pain [Unknown]
  - Feeling hot [Recovered/Resolved]
  - Nodule [Recovered/Resolved]
  - Arthropod bite [Recovered/Resolved]
